FAERS Safety Report 4952985-2 (Version None)
Quarter: 2006Q1

REPORT INFORMATION
  Report Type: 
  Country: None (occurrence: None)
  Receive Date: 20060320
  Receipt Date: 20060308
  Transmission Date: 20060701
  Serious: Yes (Other)
  Sender: FDA-Public Use
  Company Number: 2006033817

PATIENT
  Age: 58 Year
  Sex: Male
  Weight: 96.6162 kg

DRUGS (3)
  1. FRAGMIN [Suspect]
     Indication: THROMBOSIS
     Dosage: BID INTERVAL EVERY DAY SUBCUTANEOUS
     Route: 058
     Dates: start: 20060201, end: 20060201
  2. COUMADIN [Concomitant]
  3. HEPARIN [Concomitant]

REACTIONS (1)
  - PLATELET COUNT INCREASED [None]
